FAERS Safety Report 4998342-4 (Version None)
Quarter: 2006Q2

REPORT INFORMATION
  Report Type: 
  Country: None (occurrence: None)
  Receive Date: 20060510
  Receipt Date: 20060501
  Transmission Date: 20061013
  Serious: Yes (Other)
  Sender: FDA-Public Use
  Company Number: US-SANOFI-SYNTHELABO-A03200602765

PATIENT
  Sex: Female

DRUGS (2)
  1. AMBIEN [Suspect]
     Indication: INSOMNIA
     Route: 048
  2. AMBIEN [Suspect]
     Dosage: TOOK 30 MG OVER 2 DAYS
     Route: 048

REACTIONS (6)
  - AMNESIA [None]
  - DEPENDENCE [None]
  - EATING DISORDER [None]
  - INTENTIONAL OVERDOSE [None]
  - LOSS OF CONSCIOUSNESS [None]
  - SLEEP WALKING [None]
